FAERS Safety Report 8499728-6 (Version None)
Quarter: 2012Q3

REPORT INFORMATION
  Report Type: 
  Country: None (occurrence: None)
  Receive Date: 20120710
  Receipt Date: 20120627
  Transmission Date: 20120928
  Serious: Yes (Hospitalization, Other)
  Sender: FDA-Public Use
  Company Number: CA-SANOFI-AVENTIS-2012SA046085

PATIENT
  Age: 51 Year
  Sex: Male

DRUGS (27)
  1. CAPECITABINE [Suspect]
     Dosage: BDX 14 DAYS
     Route: 048
     Dates: start: 20120322, end: 20120627
  2. DECADRON [Concomitant]
     Route: 048
     Dates: start: 20120321
  3. POTASSIUM CHLORIDE [Concomitant]
     Route: 048
     Dates: start: 20120601, end: 20120605
  4. MOTILIUM [Concomitant]
     Indication: PROPHYLAXIS
     Route: 048
     Dates: start: 20120523
  5. IBUPROFEN (ADVIL) [Concomitant]
     Indication: PAIN MANAGEMENT
     Route: 048
     Dates: start: 20120320
  6. VITAMIN B-12 [Concomitant]
     Route: 030
     Dates: start: 19980101
  7. POTASSIUM CHLORIDE [Concomitant]
     Route: 042
     Dates: start: 20120529, end: 20120529
  8. POTASSIUM CHLORIDE [Concomitant]
     Route: 042
     Dates: start: 20120531, end: 20120531
  9. POTASSIUM CHLORIDE [Concomitant]
     Route: 048
     Dates: start: 20120525, end: 20120529
  10. LAXATIVES [Concomitant]
     Indication: CONSTIPATION
     Route: 048
     Dates: start: 20120528
  11. IRINOTECAN HCL [Suspect]
     Route: 042
     Dates: start: 20120321, end: 20120627
  12. ELOXATIN [Suspect]
     Route: 042
     Dates: start: 20120321, end: 20120627
  13. ACETAMINOPHEN [Concomitant]
     Indication: PAIN MANAGEMENT
     Route: 048
     Dates: start: 20120316
  14. ENSURE [Concomitant]
     Route: 048
     Dates: start: 20120301
  15. SODIUM CHLORIDE [Concomitant]
     Indication: DEHYDRATION
     Route: 042
     Dates: start: 20120522, end: 20120525
  16. POTASSIUM CHLORIDE [Concomitant]
     Route: 048
     Dates: start: 20120529, end: 20120601
  17. COLACE [Concomitant]
     Indication: CONSTIPATION
     Route: 048
     Dates: start: 20120323
  18. POTASSIUM CHLORIDE [Concomitant]
     Route: 042
     Dates: start: 20120601, end: 20120601
  19. SODIUM CHLORIDE [Concomitant]
     Route: 042
     Dates: start: 20120531, end: 20120531
  20. POTASSIUM CHLORIDE [Concomitant]
     Route: 048
     Dates: start: 20120410, end: 20120416
  21. PANTOPRAZOLE [Concomitant]
     Route: 048
     Dates: start: 20120102
  22. SENOKOT /UNK/ [Concomitant]
     Indication: CONSTIPATION
     Route: 048
     Dates: start: 20120323
  23. SODIUM CHLORIDE [Concomitant]
     Route: 042
     Dates: start: 20120529, end: 20120529
  24. POTASSIUM CHLORIDE [Concomitant]
     Route: 042
     Dates: start: 20120525, end: 20120525
  25. CALCIUM CARBONATE [Concomitant]
     Route: 048
  26. IMMUNE GLOBULIN NOS [Concomitant]
     Route: 042
     Dates: start: 20060101
  27. ATROPINE [Concomitant]
     Indication: PROPHYLAXIS
     Route: 058
     Dates: start: 20120321

REACTIONS (2)
  - HYPOKALAEMIA [None]
  - SUPRAVENTRICULAR TACHYCARDIA [None]
